FAERS Safety Report 10157652 (Version 4)
Quarter: 2014Q2

REPORT INFORMATION
  Report Type: Other
  Country: US (occurrence: US)
  Receive Date: 20140507
  Receipt Date: 20140627
  Transmission Date: 20141212
  Serious: Yes (Disabling, Other)
  Sender: FDA-Public Use
  Company Number: US-SHIRE-US201401886

PATIENT
  Age: 54 Year
  Sex: Female
  Weight: 86.17 kg

DRUGS (11)
  1. VYVANSE [Suspect]
     Indication: ATTENTION DEFICIT/HYPERACTIVITY DISORDER
     Dosage: 30 MG, 1X/DAY:QD
     Route: 048
     Dates: start: 201303, end: 201310
  2. VYVANSE [Suspect]
     Indication: DISTURBANCE IN ATTENTION
     Dosage: 60 MG, 1X/DAY:QD (30MG, 2 CAPSULES, ONCE DAILY)
     Route: 048
     Dates: start: 201310, end: 201310
  3. VYVANSE [Suspect]
     Dosage: 50 MG, 1X/DAY:QD
     Route: 048
     Dates: start: 201310, end: 201402
  4. CELEXA                             /00582602/ [Suspect]
     Indication: DEPRESSION
     Dosage: UNK, UNKNOWN
     Route: 065
     Dates: start: 2001, end: 2013
  5. IMITREX                            /01044801/ [Concomitant]
     Indication: MIGRAINE
     Dosage: 50 MG, AS REQ^D
     Route: 065
  6. VICODIN [Concomitant]
     Indication: MIGRAINE
     Dosage: UNK, AS REQ^D
     Route: 065
  7. VICODIN [Concomitant]
     Indication: PAIN
  8. PROMETHAZINE [Concomitant]
     Indication: MIGRAINE
     Dosage: UNK, UNKNOWN
     Route: 065
  9. PROMETHAZINE [Concomitant]
     Indication: VOMITING
  10. FIORICET [Concomitant]
     Indication: MIGRAINE
     Dosage: UNK, AS REQ^D
     Route: 065
  11. FIORICET [Concomitant]
     Indication: PAIN

REACTIONS (17)
  - Neuropathy peripheral [Unknown]
  - Peripheral coldness [Not Recovered/Not Resolved]
  - Hypoaesthesia [Not Recovered/Not Resolved]
  - Paraesthesia [Unknown]
  - Pain in extremity [Not Recovered/Not Resolved]
  - Performance status decreased [Unknown]
  - Nail disorder [Unknown]
  - Muscular weakness [Not Recovered/Not Resolved]
  - Discomfort [Not Recovered/Not Resolved]
  - Legal problem [Recovered/Resolved]
  - Confusional state [Not Recovered/Not Resolved]
  - Drug interaction [Unknown]
  - Abnormal behaviour [Unknown]
  - Emotional distress [Unknown]
  - Tremor [Unknown]
  - Drug dose omission [Not Recovered/Not Resolved]
  - Drug ineffective [Recovered/Resolved]
